FAERS Safety Report 10886123 (Version 3)
Quarter: 2015Q1

REPORT INFORMATION
  Report Type: Report from Study
  Country: US (occurrence: US)
  Receive Date: 20150304
  Receipt Date: 20150326
  Transmission Date: 20150721
  Serious: Yes (Hospitalization, Other)
  Sender: FDA-Public Use
  Company Number: US-BAYER-2014-188470

PATIENT
  Age: 82 Year
  Sex: Female

DRUGS (4)
  1. DILTIAZEM [Concomitant]
     Active Substance: DILTIAZEM
     Dosage: UNK
  2. ADEMPAS [Suspect]
     Active Substance: RIOCIGUAT
     Indication: PULMONARY ARTERIAL HYPERTENSION
     Dosage: 0.5 MG, TID
     Route: 048
  3. ADEMPAS [Suspect]
     Active Substance: RIOCIGUAT
     Indication: PULMONARY ARTERIAL HYPERTENSION
     Dosage: 1 MG, TID
     Route: 048
     Dates: start: 20141208
  4. TORSEMIDE. [Concomitant]
     Active Substance: TORSEMIDE
     Dosage: UNK

REACTIONS (11)
  - Hypotension [None]
  - Wrong technique in drug usage process [None]
  - Fall [None]
  - Foot fracture [None]
  - Dizziness [None]
  - Asthenia [None]
  - Dizziness [None]
  - Fall [None]
  - Hypotension [None]
  - Gait disturbance [None]
  - Hypotension [None]

NARRATIVE: CASE EVENT DATE: 20141218
